FAERS Safety Report 10798097 (Version 1)
Quarter: 2015Q1

REPORT INFORMATION
  Report Type: Report from Study
  Country: US (occurrence: US)
  Receive Date: 20150216
  Receipt Date: 20150216
  Transmission Date: 20150721
  Serious: No
  Sender: FDA-Public Use
  Company Number: US-ABBVIE-14K-163-1233442-00

PATIENT
  Age: 29 Year
  Sex: Female

DRUGS (8)
  1. XANAX [Suspect]
     Active Substance: ALPRAZOLAM
     Indication: SLEEP DISORDER
     Dosage: BEFORE BED
  2. PREDNISONE. [Suspect]
     Active Substance: PREDNISONE
     Indication: ABDOMINAL PAIN
  3. PREDNISONE. [Suspect]
     Active Substance: PREDNISONE
     Indication: ARTHRITIS
  4. PREDNISONE. [Suspect]
     Active Substance: PREDNISONE
     Dates: start: 201404
  5. HUMIRA [Suspect]
     Active Substance: ADALIMUMAB
     Indication: ARTHRALGIA
     Dates: start: 201402, end: 201402
  6. HUMIRA [Suspect]
     Active Substance: ADALIMUMAB
     Indication: CROHN^S DISEASE
     Dates: start: 20140201, end: 20140201
  7. PREDNISONE. [Suspect]
     Active Substance: PREDNISONE
     Indication: FREQUENT BOWEL MOVEMENTS
  8. HUMIRA [Suspect]
     Active Substance: ADALIMUMAB

REACTIONS (17)
  - Drug ineffective [Not Recovered/Not Resolved]
  - Myalgia [Unknown]
  - Injection site pain [Not Recovered/Not Resolved]
  - Injection site haemorrhage [Not Recovered/Not Resolved]
  - Infrequent bowel movements [Unknown]
  - Vitamin B12 decreased [Unknown]
  - Arthralgia [Unknown]
  - Pain in extremity [Unknown]
  - Blood iron increased [Unknown]
  - Vitamin D decreased [Unknown]
  - Frequent bowel movements [Unknown]
  - Sleep disorder [Not Recovered/Not Resolved]
  - Drug ineffective [Unknown]
  - Fatigue [Unknown]
  - Injection site discolouration [Not Recovered/Not Resolved]
  - Injection site bruising [Not Recovered/Not Resolved]
  - Pain [Not Recovered/Not Resolved]

NARRATIVE: CASE EVENT DATE: 2014
